FAERS Safety Report 5252860-2 (Version None)
Quarter: 2007Q1

REPORT INFORMATION
  Report Type: 
  Country: None (occurrence: None)
  Receive Date: 20070227
  Receipt Date: 20070213
  Transmission Date: 20070707
  Serious: Yes (Hospitalization)
  Sender: FDA-Public Use
  Company Number: MEDI-0005343

PATIENT
  Age: 6 Month
  Sex: Male

DRUGS (3)
  1. SYNAGIS [Suspect]
     Indication: ANTIVIRAL PROPHYLAXIS
     Dates: start: 20061108, end: 20070109
  2. SYNAGIS [Suspect]
     Indication: ANTIVIRAL PROPHYLAXIS
     Dates: start: 20061108
  3. SYNAGIS [Suspect]
     Indication: ANTIVIRAL PROPHYLAXIS
     Dates: start: 20061208

REACTIONS (4)
  - BRONCHIOLITIS [None]
  - DISEASE RECURRENCE [None]
  - GASTROENTERITIS ROTAVIRUS [None]
  - RASH MACULO-PAPULAR [None]
